FAERS Safety Report 11237081 (Version 1)
Quarter: 2015Q3

REPORT INFORMATION
  Report Type: Spontaneous
  Country: FR (occurrence: FR)
  Receive Date: 20150703
  Receipt Date: 20150703
  Transmission Date: 20151125
  Serious: Yes (Other)
  Sender: FDA-Public Use
  Company Number: FR-ASTRAZENECA-2015SE64134

PATIENT
  Sex: Female

DRUGS (4)
  1. XEROQUEL [Suspect]
     Active Substance: QUETIAPINE FUMARATE
     Indication: DEPRESSION
     Route: 048
  2. XEROQUEL [Suspect]
     Active Substance: QUETIAPINE FUMARATE
     Indication: DEPRESSION
     Route: 048
  3. VENTOLINE [Concomitant]
     Active Substance: ALBUTEROL
  4. VENTOLINE [Concomitant]
     Active Substance: ALBUTEROL
     Dosage: INCREASED

REACTIONS (1)
  - Asthmatic crisis [Recovering/Resolving]
